FAERS Safety Report 4644927-4 (Version None)
Quarter: 2005Q2

REPORT INFORMATION
  Report Type: 
  Country: None (occurrence: None)
  Receive Date: 20050425
  Receipt Date: 20050413
  Transmission Date: 20051028
  Serious: Yes (Hospitalization)
  Sender: FDA-Public Use
  Company Number: 2005AP000342

PATIENT
  Age: 43 Year
  Sex: Male

DRUGS (2)
  1. FLUOXETINE HYDROCHLORIDE [Suspect]
     Dosage: 20 MG; QD
  2. ARIPIPRAZOLE [Suspect]
     Dosage: 30 MG; QD

REACTIONS (4)
  - ALANINE AMINOTRANSFERASE INCREASED [None]
  - DRUG INTERACTION [None]
  - NEUROLEPTIC MALIGNANT SYNDROME [None]
  - PSYCHOMOTOR RETARDATION [None]
